FAERS Safety Report 12838897 (Version 2)
Quarter: 2016Q4

REPORT INFORMATION
  Report Type: Report from Study
  Country: AU (occurrence: AU)
  Receive Date: 20161012
  Receipt Date: 20161014
  Transmission Date: 20170207
  Serious: Yes (Other)
  Sender: FDA-Public Use
  Company Number: AU-REGENERON PHARMACEUTICALS, INC.-2016-22508

PATIENT

DRUGS (2)
  1. PROLIA [Concomitant]
     Active Substance: DENOSUMAB
     Indication: PRODUCT USED FOR UNKNOWN INDICATION
  2. EYLEA [Suspect]
     Active Substance: AFLIBERCEPT
     Indication: NEOVASCULAR AGE-RELATED MACULAR DEGENERATION
     Dosage: 2 MG, TOTAL NUMBER OF INJECTIONS RECEIVED NOT REPORTED
     Route: 031
     Dates: start: 20121201

REACTIONS (5)
  - Depression [Unknown]
  - Accident [Recovering/Resolving]
  - Contusion [Recovering/Resolving]
  - Activities of daily living impaired [Unknown]
  - Bone contusion [Recovering/Resolving]

NARRATIVE: CASE EVENT DATE: 20160919
